FAERS Safety Report 9553975 (Version 2)
Quarter: 2013Q4

REPORT INFORMATION
  Report Type: Report from Study
  Country: US (occurrence: US)
  Receive Date: 20130925
  Receipt Date: 20131009
  Transmission Date: 20140711
  Serious: No
  Sender: FDA-Public Use
  Company Number: US-VERTEX PHARMACEUTICALS INC-2013-009712

PATIENT
  Age: 59 Year
  Sex: Male
  Weight: 76.64 kg

DRUGS (3)
  1. VX-950 (TELAPREVIR) [Suspect]
     Indication: HEPATITIS C
     Dosage: 750 MG, TID
     Dates: start: 20130830, end: 20131001
  2. COPEGUS [Suspect]
     Indication: HEPATITIS C
     Dosage: 1000 MG, QD
     Route: 048
     Dates: start: 20130830, end: 20131001
  3. PEGASYS [Suspect]
     Indication: HEPATITIS C
     Dosage: 180 ?G, QW
     Route: 058
     Dates: start: 20130830, end: 20131001

REACTIONS (4)
  - Weight increased [Not Recovered/Not Resolved]
  - Gastrooesophageal reflux disease [Not Recovered/Not Resolved]
  - Insomnia [Recovered/Resolved]
  - Drug ineffective [Unknown]
